FAERS Safety Report 4426267-1 (Version None)
Quarter: 2004Q3

REPORT INFORMATION
  Report Type: 
  Country: None (occurrence: None)
  Receive Date: 20040811
  Receipt Date: 20040803
  Transmission Date: 20050211
  Serious: Yes (Other)
  Sender: FDA-Public Use
  Company Number: HQWYE816604AUG04

PATIENT
  Age: 41 Year
  Sex: Male

DRUGS (1)
  1. ADVIL [Suspect]
     Indication: ARTHRALGIA
     Dosage: 2 TABLET 1X PER 1 DAY
     Route: 048
     Dates: start: 20040803, end: 20040803

REACTIONS (3)
  - DYSPNOEA [None]
  - EYE SWELLING [None]
  - URTICARIA [None]
